FAERS Safety Report 9888956 (Version 1)
Quarter: 2014Q1

REPORT INFORMATION
  Report Type: Spontaneous
  Country: HU (occurrence: HU)
  Receive Date: 20140211
  Receipt Date: 20140211
  Transmission Date: 20141002
  Serious: Yes (Hospitalization)
  Sender: FDA-Public Use
  Company Number: HU-GLAXOSMITHKLINE-B0967855A

PATIENT
  Age: 58 Year
  Sex: Female

DRUGS (1)
  1. TYVERB [Suspect]
     Indication: PRODUCT USED FOR UNKNOWN INDICATION
     Dates: start: 2008, end: 20131213

REACTIONS (3)
  - Vasculitis [Recovering/Resolving]
  - Pruritus [Recovering/Resolving]
  - Fistula [Recovering/Resolving]
